FAERS Safety Report 6857298-X (Version None)
Quarter: 2010Q3

REPORT INFORMATION
  Report Type: 
  Country: None (occurrence: None)
  Receive Date: 20100719
  Receipt Date: 20100708
  Transmission Date: 20110219
  Serious: Yes (Other)
  Sender: FDA-Public Use
  Company Number: JP-PFIZER INC-2010084943

PATIENT
  Age: 7 Year
  Sex: Male
  Weight: 25 kg

DRUGS (4)
  1. ZITHROMAC [Suspect]
     Indication: PNEUMONIA
     Dosage: 250 MG/DAY
     Route: 048
     Dates: start: 20100706, end: 20100707
  2. VICCILLIN [Suspect]
     Dosage: 1 G, 2X/DAY
     Route: 042
     Dates: start: 20100706, end: 20100706
  3. VICCILLIN [Suspect]
     Dosage: 1 G, 3X/DAY
     Route: 042
     Dates: start: 20100707, end: 20100707
  4. VICCILLIN [Suspect]
     Dosage: 1 G, 1X/DAY
     Route: 042
     Dates: start: 20100708, end: 20100708

REACTIONS (2)
  - GRANULOCYTE COUNT DECREASED [None]
  - NEUTROPENIA [None]
